FAERS Safety Report 24105982 (Version 1)
Quarter: 2024Q3

REPORT INFORMATION
  Report Type: Spontaneous
  Country: US (occurrence: None)
  Receive Date: 20240716
  Receipt Date: 20240716
  Transmission Date: 20241017
  Serious: No
  Sender: Public
  Company Number: None

PATIENT
  Age: 64 Year
  Sex: Female
  Weight: 67.95 kg

DRUGS (8)
  1. WEGOVY [Suspect]
     Active Substance: SEMAGLUTIDE
     Indication: Weight decreased
     Dosage: 4 INJECTIONS WEEKLY SUBCUTANEOUS?
     Route: 058
  2. wegovy [Concomitant]
  3. COLLAGEN [Concomitant]
     Active Substance: COLLAGEN
  4. MAGNESIUM [Concomitant]
     Active Substance: MAGNESIUM
  5. GLYCINE [Concomitant]
     Active Substance: GLYCINE
  6. METAMUCIL [Concomitant]
     Active Substance: PLANTAGO SEED
  7. PROBIOTICS NOS [Concomitant]
     Active Substance: PROBIOTICS NOS
  8. misc supplements [Concomitant]

REACTIONS (5)
  - Pain [None]
  - Nervous system disorder [None]
  - Skin burning sensation [None]
  - Arthralgia [None]
  - Discomfort [None]

NARRATIVE: CASE EVENT DATE: 20240701
